FAERS Safety Report 5130984-8 (Version None)
Quarter: 2006Q3

REPORT INFORMATION
  Report Type: 
  Country: None (occurrence: None)
  Receive Date: 20060829
  Receipt Date: 20060510
  Transmission Date: 20061208
  Serious: Yes (Hospitalization)
  Sender: FDA-Public Use
  Company Number: PHEH2006US06143

PATIENT
  Age: 68 Year
  Sex: Male

DRUGS (14)
  1. EXJADE [Suspect]
     Indication: BLOOD IRON INCREASED
     Dosage: 1500 MG, QD
     Dates: start: 20060101
  2. LASIX [Concomitant]
  3. FOLIC ACID [Concomitant]
  4. FLONASE (FLUTICASONE HYDROCHLORIDE) [Concomitant]
  5. VITAMIN B6 [Concomitant]
  6. ISOSORBIDE (ISOSORBIDE) [Concomitant]
  7. TOPROL-XL [Concomitant]
  8. CARDIZEM [Concomitant]
  9. PREDNISONE TAB [Concomitant]
  10. ZYRTEC [Concomitant]
  11. ZOLOFT [Concomitant]
  12. NEURONTIN [Concomitant]
  13. DARAZOL (DARAZOL) [Concomitant]
  14. POTASSIUM (POTASSIUM) [Concomitant]

REACTIONS (10)
  - CARDIAC DISORDER [None]
  - CARDIAC FAILURE CONGESTIVE [None]
  - CARDIOMYOPATHY [None]
  - CONCOMITANT DISEASE PROGRESSION [None]
  - FAILURE TO THRIVE [None]
  - GENERAL PHYSICAL HEALTH DETERIORATION [None]
  - HEPATIC FAILURE [None]
  - HYPOTENSION [None]
  - MYELODYSPLASTIC SYNDROME [None]
  - RENAL FAILURE [None]
